FAERS Safety Report 4510486-X (Version None)
Quarter: 2004Q4

REPORT INFORMATION
  Report Type: 
  Country: None (occurrence: None)
  Receive Date: 20041124
  Receipt Date: 20041113
  Transmission Date: 20050328
  Serious: Yes (Other)
  Sender: FDA-Public Use
  Company Number: EE-GLAXOSMITHKLINE-B0357635A

PATIENT
  Age: 6 Month

DRUGS (1)
  1. ZINACEF [Suspect]
     Route: 042

REACTIONS (2)
  - CIRCULATORY COLLAPSE [None]
  - ILL-DEFINED DISORDER [None]
